FAERS Safety Report 8052362-4 (Version None)
Quarter: 2012Q1

REPORT INFORMATION
  Report Type: 
  Country: None (occurrence: None)
  Receive Date: 20120117
  Receipt Date: 20120117
  Transmission Date: 20120608
  Serious: No
  Sender: FDA-Public Use
  Company Number: None

PATIENT
  Sex: Female

DRUGS (1)
  1. ADCIRCA [Suspect]
     Indication: PULMONARY HYPERTENSION
     Dosage: 40MG QD PO
     Route: 048
     Dates: start: 20120111, end: 20120114

REACTIONS (2)
  - NASAL CONGESTION [None]
  - BACK PAIN [None]
